FAERS Safety Report 5189226-X (Version None)
Quarter: 2006Q4

REPORT INFORMATION
  Report Type: 
  Country: None (occurrence: None)
  Receive Date: 20061215
  Receipt Date: 20061204
  Transmission Date: 20070319
  Serious: Yes (Hospitalization, Other)
  Sender: FDA-Public Use
  Company Number: 2006114581

PATIENT
  Sex: Male

DRUGS (3)
  1. BEXTRA [Suspect]
     Dates: start: 20011101, end: 20021001
  2. CELEBREX [Suspect]
     Dates: start: 20000619
  3. VIOXX [Suspect]
     Dosage: ORAL
     Route: 048
     Dates: start: 20011019

REACTIONS (3)
  - CEREBROVASCULAR ACCIDENT [None]
  - HEART INJURY [None]
  - PULMONARY EMBOLISM [None]
